FAERS Safety Report 7096868 (Version 11)
Quarter: 2015Q2

REPORT INFORMATION
  Report Type: Report from Study
  Country: CA (occurrence: CA)
  Receive Date: 20090826
  Receipt Date: 20150609
  Transmission Date: 20150821
  Serious: Yes (Other)
  Sender: FDA-Public Use
  Company Number: PHHY2009CA35179

PATIENT
  Age: 66 Year
  Sex: Male

DRUGS (7)
  1. SUTENT [Suspect]
     Active Substance: SUNITINIB MALATE
     Indication: PRODUCT USED FOR UNKNOWN INDICATION
     Dosage: 12.5 MG, UNK
     Route: 065
  2. SUTENT [Suspect]
     Active Substance: SUNITINIB MALATE
     Dosage: 25 MG, UNK
     Route: 065
  3. SANDOSTATIN LAR DEPOT [Suspect]
     Active Substance: OCTREOTIDE ACETATE
     Indication: MALIGNANT NEOPLASM OF ISLETS OF LANGERHANS
     Dosage: 20 MG, EVERY 4 WEEKS
     Route: 030
     Dates: start: 20090817
  4. SANDOSTATIN LAR DEPOT [Suspect]
     Active Substance: OCTREOTIDE ACETATE
     Dosage: 30 MG, EVERY 4 WEEKS (ONCE A MONTH)
     Route: 030
  5. AFINITOR [Suspect]
     Active Substance: EVEROLIMUS
     Indication: MALIGNANT NEOPLASM OF ISLETS OF LANGERHANS
     Dosage: 10 MG, ONCE DAILY
     Route: 048
     Dates: start: 20110513, end: 2014
  6. SANDOSTATIN LAR DEPOT [Suspect]
     Active Substance: OCTREOTIDE ACETATE
     Dosage: 30 MG, QMO
     Route: 030
  7. SANDOSTATIN LAR DEPOT [Suspect]
     Active Substance: OCTREOTIDE ACETATE
     Dosage: 60 MG, EVERY 28 DAYS
     Route: 030

REACTIONS (27)
  - Vision blurred [Recovering/Resolving]
  - Tremor [Recovered/Resolved]
  - Pollakiuria [Unknown]
  - Abdominal distension [Recovering/Resolving]
  - Yellow skin [Unknown]
  - Needle issue [Unknown]
  - Syringe issue [Unknown]
  - Blood glucose increased [Recovering/Resolving]
  - Hypertension [Recovering/Resolving]
  - Blood glucose decreased [Unknown]
  - Second primary malignancy [Unknown]
  - Anxiety [Recovered/Resolved]
  - Sleep disorder [Unknown]
  - Prostate cancer stage I [Unknown]
  - Syncope [Recovered/Resolved]
  - Flushing [Unknown]
  - White blood cell count decreased [Unknown]
  - Pulse abnormal [Recovering/Resolving]
  - Abdominal pain [Recovering/Resolving]
  - Skin disorder [Unknown]
  - Blood pressure decreased [Recovered/Resolved]
  - Blood bilirubin increased [Unknown]
  - Hyperhidrosis [Recovered/Resolved]
  - Dizziness [Recovered/Resolved]
  - Chills [Not Recovered/Not Resolved]
  - Feeling abnormal [Recovered/Resolved]
  - Psychomotor hyperactivity [Recovered/Resolved]

NARRATIVE: CASE EVENT DATE: 20131210
